FAERS Safety Report 9456737 (Version 1)
Quarter: 2013Q3

REPORT INFORMATION
  Report Type: Spontaneous
  Country: US (occurrence: US)
  Receive Date: 20130813
  Receipt Date: 20130813
  Transmission Date: 20140515
  Serious: No
  Sender: FDA-Public Use
  Company Number: US-PFIZER INC-2013231832

PATIENT
  Age: 6 Decade
  Sex: Female
  Weight: 90.7 kg

DRUGS (4)
  1. LEVOXYL [Suspect]
     Indication: FATIGUE
     Dosage: 75 UG, 1X/DAY
  2. LEVOXYL [Suspect]
     Indication: ASTHENIA
  3. LEVOXYL [Suspect]
     Indication: THYROID DISORDER
  4. HYDROCHLOROTHIAZIDE [Concomitant]
     Indication: FLUID RETENTION
     Dosage: 25 MG, 1X/DAY

REACTIONS (6)
  - Feeling abnormal [Recovered/Resolved]
  - Weight increased [Unknown]
  - Fatigue [Recovered/Resolved]
  - Drug intolerance [Unknown]
  - Cardiac disorder [Recovered/Resolved]
  - Heart rate increased [Recovered/Resolved]
